FAERS Safety Report 4695055-3 (Version None)
Quarter: 2005Q2

REPORT INFORMATION
  Report Type: 
  Country: None (occurrence: None)
  Receive Date: 20050617
  Receipt Date: 20050606
  Transmission Date: 20051028
  Serious: Yes (Other)
  Sender: FDA-Public Use
  Company Number: 2005081698

PATIENT
  Sex: Female
  Weight: 7.8 kg

DRUGS (6)
  1. HYDROCORTISONE SODIUM SUCCINATE [Suspect]
     Indication: ILL-DEFINED DISORDER
     Dosage: INTRAVENOUS
     Route: 042
  2. CEFTAZIDIME SODIUM [Concomitant]
  3. COLISTIN (COLISTIN) [Concomitant]
  4. RANITIDINE HCL [Concomitant]
  5. FRUSEMIDE (FRUSEMIDE) [Concomitant]
  6. ALL OTHER THERAPEUTIC PRODUCTS (ALL OTHER THERAPEUTIC PRODUCTS) [Concomitant]

REACTIONS (1)
  - HEPATIC FAILURE [None]
